FAERS Safety Report 20396746 (Version 2)
Quarter: 2022Q1

REPORT INFORMATION
  Report Type: Spontaneous
  Country: US (occurrence: US)
  Receive Date: 20220130
  Receipt Date: 20220201
  Transmission Date: 20220423
  Serious: Yes (Hospitalization)
  Sender: FDA-Public Use
  Company Number: US-ABBVIE-21K-163-3864232-00

PATIENT
  Age: 55 Year
  Sex: Male
  Weight: 108.96 kg

DRUGS (5)
  1. HUMIRA [Suspect]
     Active Substance: ADALIMUMAB
     Indication: Rheumatoid arthritis
     Route: 030
     Dates: start: 202103, end: 20210331
  2. COVID-19 VACCINE [Concomitant]
     Indication: COVID-19 immunisation
     Dosage: PFIZER
     Route: 030
     Dates: start: 20210401, end: 20210401
  3. FLECAINIDE [Concomitant]
     Active Substance: FLECAINIDE
     Indication: Rheumatoid arthritis
  4. UNSPECIFIED INGREDIENT [Concomitant]
     Active Substance: UNSPECIFIED INGREDIENT
     Indication: Arthritis
  5. AZATHIOPRINE [Concomitant]
     Active Substance: AZATHIOPRINE
     Indication: Arthritis

REACTIONS (1)
  - Arthritis infective [Recovering/Resolving]

NARRATIVE: CASE EVENT DATE: 20210406
